FAERS Safety Report 16862673 (Version 3)
Quarter: 2019Q4

REPORT INFORMATION
  Report Type: Spontaneous
  Country: US (occurrence: US)
  Receive Date: 20190927
  Receipt Date: 20191016
  Transmission Date: 20200122
  Serious: Yes (Hospitalization)
  Sender: FDA-Public Use
  Company Number: US-SUNOVION-2019SUN003940

PATIENT
  Age: 62 Year
  Sex: Male

DRUGS (1)
  1. LONHALA MAGNAIR [Suspect]
     Active Substance: GLYCOPYRROLATE
     Indication: CHRONIC OBSTRUCTIVE PULMONARY DISEASE
     Dosage: 25 MCG/1 ML, BID
     Route: 055
     Dates: start: 20190917

REACTIONS (6)
  - Cough [Unknown]
  - Product dose omission [Unknown]
  - Malaise [Unknown]
  - Motor dysfunction [Unknown]
  - Dyspnoea [Unknown]
  - Gastroenteritis viral [Unknown]
